FAERS Safety Report 8956958 (Version 1)
Quarter: 2012Q4

REPORT INFORMATION
  Report Type: 
  Country: US (occurrence: US)
  Receive Date: 20121210
  Receipt Date: 20121210
  Transmission Date: 20130627
  Serious: Yes (Death)
  Sender: FDA-Public Use
  Company Number: US-GILEAD-2012-0065752

PATIENT
  Sex: Female

DRUGS (2)
  1. LETAIRIS [Suspect]
     Indication: PULMONARY ARTERIAL HYPERTENSION
     Dosage: 10 mg, QD
     Route: 048
     Dates: start: 20120627, end: 20121125
  2. REMODULIN [Suspect]
     Indication: PULMONARY HYPERTENSION
     Dates: start: 20110801

REACTIONS (2)
  - Unevaluable event [Fatal]
  - Unevaluable event [Fatal]
